FAERS Safety Report 4262060-0 (Version None)
Quarter: 2004Q1

REPORT INFORMATION
  Report Type: 
  Country: None (occurrence: None)
  Receive Date: 20040102
  Receipt Date: 20031030
  Transmission Date: 20041129
  Serious: Yes (Other)
  Sender: FDA-Public Use
  Company Number: JP-GLAXOSMITHKLINE-B0314229A

PATIENT
  Age: 64 Year
  Sex: Male

DRUGS (5)
  1. CIMETIDINE HCL [Suspect]
     Indication: GASTRIC ULCER
     Dosage: 400MG PER DAY
     Route: 048
     Dates: start: 20030919, end: 20031021
  2. AZULENE SULFONATE SODIUM [Suspect]
     Dosage: 2G PER DAY
     Route: 048
     Dates: start: 20031001
  3. ALDIOXA [Concomitant]
     Dosage: 2G PER DAY
     Route: 048
     Dates: start: 20031001
  4. RANITIDINE HYDROCHLORIDE [Concomitant]
     Dosage: 300MG PER DAY
     Dates: start: 20010501, end: 20020701
  5. ROXATIDINE ACETATE HCL [Concomitant]
     Dosage: 2MG PER DAY
     Dates: start: 20020708, end: 20030101

REACTIONS (3)
  - ECZEMA [None]
  - GASTRIC ULCER [None]
  - PRURITUS [None]
